FAERS Safety Report 6822500-7 (Version None)
Quarter: 2010Q3

REPORT INFORMATION
  Report Type: 
  Country: None (occurrence: None)
  Receive Date: 20100706
  Receipt Date: 20100706
  Transmission Date: 20110219
  Serious: Yes (Hospitalization)
  Sender: FDA-Public Use
  Company Number: None

PATIENT
  Age: 80 Year
  Sex: Male
  Weight: 106 kg

DRUGS (1)
  1. BACTRIM DS [Suspect]
     Indication: LOCALISED INFECTION
     Dosage: DS PO, APPROXIMATELY 10 DAYS
     Route: 048
     Dates: start: 20100417, end: 20100427

REACTIONS (6)
  - ARTHRALGIA [None]
  - ASTHENIA [None]
  - BLOOD CREATININE INCREASED [None]
  - FATIGUE [None]
  - FLANK PAIN [None]
  - HAEMATOCRIT DECREASED [None]
